FAERS Safety Report 4964049-2 (Version None)
Quarter: 2006Q1

REPORT INFORMATION
  Report Type: 
  Country: None (occurrence: None)
  Receive Date: 20060330
  Receipt Date: 20060322
  Transmission Date: 20060701
  Serious: Yes (Hospitalization)
  Sender: FDA-Public Use
  Company Number: 2006BI004480

PATIENT
  Age: 33 Year
  Sex: Female
  Weight: 88.4514 kg

DRUGS (6)
  1. AVONEX [Suspect]
     Indication: MULTIPLE SCLEROSIS
     Dosage: 30 UG; QW; IM
     Route: 030
     Dates: start: 20040101, end: 20050101
  2. AVONEX [Suspect]
     Indication: MULTIPLE SCLEROSIS
     Dosage: 30 UG; QW; IM
     Route: 030
     Dates: start: 20050601
  3. PEPCID [Concomitant]
  4. CALTRATE [Concomitant]
  5. FOLIC ACID [Concomitant]
  6. B12 [Concomitant]

REACTIONS (9)
  - ANXIETY [None]
  - BLINDNESS TRANSIENT [None]
  - BLINDNESS UNILATERAL [None]
  - DEPRESSION [None]
  - DIPLOPIA [None]
  - MUSCLE STRAIN [None]
  - PHOTOPHOBIA [None]
  - VISION BLURRED [None]
  - VISUAL DISTURBANCE [None]
